FAERS Safety Report 5153469-1 (Version None)
Quarter: 2006Q4

REPORT INFORMATION
  Report Type: 
  Country: None (occurrence: None)
  Receive Date: 20061117
  Receipt Date: 20061109
  Transmission Date: 20070319
  Serious: Yes (Hospitalization)
  Sender: FDA-Public Use
  Company Number: MX-ABBOTT-06P-107-0349774-00

PATIENT

DRUGS (1)
  1. KLARICID 12 H [Suspect]
     Indication: DRUG USE FOR UNKNOWN INDICATION
     Dates: start: 20061026

REACTIONS (3)
  - DIVERTICULAR HERNIA [None]
  - FEELING ABNORMAL [None]
  - GASTROINTESTINAL HAEMORRHAGE [None]
